FAERS Safety Report 9400125 (Version 2)
Quarter: 2013Q3

REPORT INFORMATION
  Report Type: Report from Study
  Country: ES (occurrence: ES)
  Receive Date: 20130715
  Receipt Date: 20130830
  Transmission Date: 20140515
  Serious: Yes (Hospitalization)
  Sender: FDA-Public Use
  Company Number: ES-PFIZER INC-2013200351

PATIENT
  Age: 59 Year
  Sex: Female
  Weight: 48.4 kg

DRUGS (5)
  1. IRINOTECAN HCL [Suspect]
     Indication: COLORECTAL CANCER METASTATIC
     Dosage: 180 MG/M2, CYCLIC (ON DAY ONE EVERY 14 DAYS)
     Route: 042
     Dates: start: 20121009, end: 20130604
  2. BLINDED THERAPY [Suspect]
     Indication: COLORECTAL CANCER METASTATIC
     Dosage: 8 MG/KG, CYCLIC (EVERY 14 DAYS)
     Route: 042
     Dates: start: 20121009, end: 20130604
  3. FOLINIC ACID [Suspect]
     Indication: COLORECTAL CANCER METASTATIC
     Dosage: 400 MG/M2, CYCLIC (ON DAY ONE EVERY 14 DAYS)
     Route: 042
     Dates: start: 20121009, end: 20130604
  4. FLUOROURACIL [Suspect]
     Indication: COLORECTAL CANCER METASTATIC
     Dosage: 400 MG/M2, CYCLIC (ON DAY ONE EVERY 14 DAYS)
     Route: 040
     Dates: start: 20121009, end: 20130604
  5. FLUOROURACIL [Suspect]
     Dosage: 2400 MG/M2, CYCLIC (ON DAY ONE AND TWO EVERY 14 DAYS)
     Route: 042
     Dates: start: 20121009, end: 20130604

REACTIONS (1)
  - Urinary tract obstruction [Recovered/Resolved]
